FAERS Safety Report 6172782-2 (Version None)
Quarter: 2009Q2

REPORT INFORMATION
  Report Type: 
  Country: None (occurrence: None)
  Receive Date: 20090428
  Receipt Date: 20090417
  Transmission Date: 20091009
  Serious: Yes (Hospitalization)
  Sender: FDA-Public Use
  Company Number: 2008AL006240

PATIENT
  Age: 38 Year
  Sex: Male
  Weight: 91.173 kg

DRUGS (7)
  1. DIGOXIN [Suspect]
     Dosage: 0.125MG, DAILY, PO
     Route: 048
     Dates: end: 20090101
  2. COREG [Concomitant]
  3. DIOVAN [Concomitant]
  4. ALDACTONE [Concomitant]
  5. PROTONIX [Concomitant]
  6. GLIPIZIDE [Concomitant]
  7. HUMIBID [Concomitant]

REACTIONS (12)
  - ANAL PRURITUS [None]
  - ANXIETY [None]
  - BRONCHITIS [None]
  - CHEST PAIN [None]
  - DIABETIC NEUROPATHY [None]
  - DIZZINESS [None]
  - FATIGUE [None]
  - MALAISE [None]
  - MEDIASTINAL MASS [None]
  - MEMORY IMPAIRMENT [None]
  - NEUROPATHY PERIPHERAL [None]
  - THYMOMA MALIGNANT [None]
